FAERS Safety Report 9892364 (Version 1)
Quarter: 2014Q1

REPORT INFORMATION
  Report Type: Spontaneous
  Country: US (occurrence: US)
  Receive Date: 20140212
  Receipt Date: 20140212
  Transmission Date: 20141002
  Serious: Yes (Hospitalization, Other)
  Sender: FDA-Public Use
  Company Number: US-ELI_LILLY_AND_COMPANY-US201402001449

PATIENT
  Age: 56 Year
  Sex: Male

DRUGS (5)
  1. HUMALOG LISPRO [Suspect]
     Indication: DIABETES MELLITUS
     Dosage: 36 U, EACH MORNING
     Route: 065
     Dates: end: 20140131
  2. HUMALOG LISPRO [Suspect]
     Dosage: 18 U, EACH EVENING
     Route: 065
     Dates: end: 20140131
  3. HUMULIN N [Concomitant]
     Indication: DIABETES MELLITUS
     Dosage: 36 U, EACH MORNING
  4. HUMULIN N [Concomitant]
     Dosage: 18 U, EACH EVENING
  5. HUMULIN N [Concomitant]
     Dosage: UNK
     Dates: start: 20140131

REACTIONS (2)
  - Road traffic accident [Unknown]
  - Hypoglycaemia [Recovered/Resolved]
